FAERS Safety Report 8393229-1 (Version None)
Quarter: 2012Q2

REPORT INFORMATION
  Report Type: 
  Country: None (occurrence: None)
  Receive Date: 20120529
  Receipt Date: 20120525
  Transmission Date: 20120825
  Serious: No
  Sender: FDA-Public Use
  Company Number: US-ABBOTT-12P-163-0938400-00

PATIENT
  Age: 72 Year
  Sex: Male
  Weight: 83.99 kg

DRUGS (2)
  1. UNKNOWN MEDICATIONS [Concomitant]
     Indication: RHEUMATOID ARTHRITIS
  2. ANDROGEL [Suspect]
     Indication: PRODUCT USED FOR UNKNOWN INDICATION
     Dates: start: 20120401

REACTIONS (1)
  - LIBIDO DECREASED [None]
